FAERS Safety Report 7334615 (Version 3)
Quarter: 2014Q1

REPORT INFORMATION
  Report Type: Spontaneous
  Country: US (occurrence: US)
  Receive Date: 20100329
  Receipt Date: 20140203
  Transmission Date: 20141002
  Serious: Yes (Other)
  Sender: FDA-Public Use
  Company Number: US-JNJFOC-20100306241

PATIENT
  Age: 39 Year
  Sex: Female
  Weight: 56.25 kg

DRUGS (11)
  1. SANDOZ FENTANYL TRANSDERMAL SYSTEM [Suspect]
     Indication: MULTIPLE SCLEROSIS
     Route: 062
     Dates: start: 201002
  2. SANDOZ FENTANYL TRANSDERMAL SYSTEM [Suspect]
     Indication: MULTIPLE SCLEROSIS
     Route: 062
     Dates: start: 2010, end: 201002
  3. SANDOZ FENTANYL TRANSDERMAL SYSTEM [Suspect]
     Indication: NEURALGIA
     Route: 062
     Dates: start: 2010, end: 201002
  4. SANDOZ FENTANYL TRANSDERMAL SYSTEM [Suspect]
     Indication: NEURALGIA
     Route: 062
     Dates: start: 201002
  5. SANDOZ FENTANYL TRANSDERMAL SYSTEM [Suspect]
     Indication: PAIN
     Route: 062
     Dates: start: 2010, end: 201002
  6. SANDOZ FENTANYL TRANSDERMAL SYSTEM [Suspect]
     Indication: PAIN
     Route: 062
     Dates: start: 201002
  7. UNSPECIFIED SANDOZ FENTANYL TRANSDERMAL SYSTEM [Suspect]
     Indication: NEURALGIA
     Route: 062
     Dates: start: 2010, end: 2010
  8. UNSPECIFIED SANDOZ FENTANYL TRANSDERMAL SYSTEM [Suspect]
     Indication: PAIN
     Route: 062
     Dates: start: 2010, end: 2010
  9. ROXICODONE [Concomitant]
     Indication: BREAKTHROUGH PAIN
     Dosage: 30MG TO 60 MG 1-2 EVERY 4-6 HOURS
     Route: 048
  10. XANAX [Concomitant]
     Indication: ANXIETY
     Dosage: EVERY 4-6 HOURS
     Route: 048
  11. TRAZODONE [Concomitant]
     Indication: SLEEP DISORDER
     Route: 048

REACTIONS (10)
  - Conversion disorder [Not Recovered/Not Resolved]
  - Blindness unilateral [Not Recovered/Not Resolved]
  - Drug ineffective [Not Recovered/Not Resolved]
  - Pain [Not Recovered/Not Resolved]
  - Tremor [Not Recovered/Not Resolved]
  - Treatment noncompliance [Recovered/Resolved]
  - Product quality issue [Unknown]
  - Product quality issue [Unknown]
  - Product quality issue [Unknown]
  - Product quality issue [Unknown]
